FAERS Safety Report 7073945-4 (Version None)
Quarter: 2010Q4

REPORT INFORMATION
  Report Type: 
  Country: None (occurrence: None)
  Receive Date: 20101029
  Receipt Date: 20101018
  Transmission Date: 20110411
  Serious: Yes (Other)
  Sender: FDA-Public Use
  Company Number: PHHY2010JP67483

PATIENT
  Age: 15 Year
  Sex: Female

DRUGS (3)
  1. CYCLOSPORINE [Suspect]
     Indication: COLITIS ULCERATIVE
     Dosage: UNK
     Dates: start: 20100217
  2. METHYLPREDNISOLONE [Concomitant]
  3. PENTASA [Concomitant]
     Dosage: UNK

REACTIONS (10)
  - ABDOMINAL PAIN [None]
  - ALPHA TUMOUR NECROSIS FACTOR INCREASED [None]
  - COLECTOMY TOTAL [None]
  - CSF GRANULOCYTE COUNT ABNORMAL [None]
  - DEPRESSION [None]
  - DEVICE RELATED INFECTION [None]
  - HYPOPITUITARISM [None]
  - INSOMNIA [None]
  - INTERLEUKIN LEVEL INCREASED [None]
  - PANCREATITIS ACUTE [None]
